FAERS Safety Report 9543514 (Version 2)
Quarter: 2013Q4

REPORT INFORMATION
  Report Type: Spontaneous
  Country: GB (occurrence: GB)
  Receive Date: 20130923
  Receipt Date: 20131216
  Transmission Date: 20140711
  Serious: Yes (Other)
  Sender: FDA-Public Use
  Company Number: GB-TEVA-433151ISR

PATIENT
  Age: 78 Year
  Sex: Female

DRUGS (6)
  1. SERTRALINE [Suspect]
     Indication: DEPRESSION
     Route: 048
  2. SERTRALINE [Suspect]
     Route: 048
     Dates: start: 201308, end: 20130827
  3. BACLOFEN [Concomitant]
  4. ADCAL-D3 [Concomitant]
     Dosage: 2 DOSAGE FORMS DAILY;
     Route: 048
  5. SIMVASTATIN [Concomitant]
     Dosage: 20 MILLIGRAM DAILY; ONE AT NIGHT.
  6. ZOPICLONE [Concomitant]
     Dosage: 7.5 MILLIGRAM DAILY; ONE AT NIGHT.
     Route: 048

REACTIONS (4)
  - Serotonin syndrome [Recovered/Resolved]
  - Fall [Recovered/Resolved]
  - Muscle rigidity [Recovered/Resolved]
  - Muscle contracture [Recovered/Resolved]
